FAERS Safety Report 25223513 (Version 1)
Quarter: 2025Q2

REPORT INFORMATION
  Report Type: Report from Study
  Country: TR (occurrence: None)
  Receive Date: 20250422
  Receipt Date: 20250422
  Transmission Date: 20250716
  Serious: Yes (Other)
  Sender: i3 Pharmaceuticals
  Company Number: None

PATIENT

DRUGS (1)
  1. GUANFACINE [Suspect]
     Active Substance: GUANFACINE
     Indication: Attention deficit hyperactivity disorder
     Route: 065

REACTIONS (5)
  - Electrocardiogram QT prolonged [Unknown]
  - Dizziness [Unknown]
  - Visual impairment [Unknown]
  - Sinus bradycardia [Unknown]
  - Hypotension [Unknown]
